FAERS Safety Report 7439274-1 (Version None)
Quarter: 2011Q2

REPORT INFORMATION
  Report Type: 
  Country: None (occurrence: None)
  Receive Date: 20110427
  Receipt Date: 20110420
  Transmission Date: 20111010
  Serious: Yes (Other)
  Sender: FDA-Public Use
  Company Number: US-BAYER-2011-034803

PATIENT
  Sex: Female

DRUGS (1)
  1. YAZ [Suspect]
     Dosage: UNK
     Dates: start: 20060301, end: 20090401

REACTIONS (7)
  - POST CHOLECYSTECTOMY SYNDROME [None]
  - INJURY [None]
  - GALLBLADDER PAIN [None]
  - ANXIETY [None]
  - ANHEDONIA [None]
  - MENTAL DISORDER [None]
  - PAIN [None]
